FAERS Safety Report 19082535 (Version 1)
Quarter: 2021Q2

REPORT INFORMATION
  Report Type: Spontaneous
  Country: US (occurrence: US)
  Receive Date: 20210401
  Receipt Date: 20210401
  Transmission Date: 20210717
  Serious: Yes (Hospitalization)
  Sender: FDA-Public Use
  Company Number: None

PATIENT
  Age: 34 Year
  Sex: Male

DRUGS (1)
  1. HUMIRA [Suspect]
     Active Substance: ADALIMUMAB
     Indication: HIDRADENITIS
     Dosage: ?          OTHER FREQUENCY:160MG DAY 1;?
     Route: 058
     Dates: start: 20210327

REACTIONS (2)
  - Incorrect dose administered [None]
  - Migraine [None]

NARRATIVE: CASE EVENT DATE: 20210327
